FAERS Safety Report 19459264 (Version 2)
Quarter: 2022Q1

REPORT INFORMATION
  Report Type: Report from Study
  Country: US (occurrence: US)
  Receive Date: 20210624
  Receipt Date: 20220316
  Transmission Date: 20220424
  Serious: Yes (Other)
  Sender: FDA-Public Use
  Company Number: US-ABBVIE-21K-163-3963571-00

PATIENT
  Sex: Male

DRUGS (4)
  1. SKYRIZI [Suspect]
     Active Substance: RISANKIZUMAB-RZAA
     Indication: Psoriasis
     Route: 058
  2. PIZER BIONTECH COVID-19 VACCINE [Concomitant]
     Indication: COVID-19 immunisation
     Dosage: FIRST DOSE
     Route: 030
     Dates: start: 20210101, end: 20210101
  3. PIZER BIONTECH COVID-19 VACCINE [Concomitant]
     Dosage: SECOND DOSE
     Route: 030
     Dates: start: 20210201, end: 20210201
  4. PIZER BIONTECH COVID-19 VACCINE [Concomitant]
     Dosage: THIRD DOSE/ BOOSTER DOSE
     Route: 030
     Dates: start: 20211201, end: 20211201

REACTIONS (2)
  - Squamous cell carcinoma of skin [Recovering/Resolving]
  - Blister [Unknown]
